FAERS Safety Report 24409906 (Version 2)
Quarter: 2025Q1

REPORT INFORMATION
  Report Type: Report from Study
  Country: CO (occurrence: CO)
  Receive Date: 20241008
  Receipt Date: 20250325
  Transmission Date: 20250409
  Serious: Yes (Other)
  Sender: GLAXOSMITHKLINE
  Company Number: CO-GSK-CO2024AMR108500

PATIENT

DRUGS (1)
  1. BELIMUMAB [Suspect]
     Active Substance: BELIMUMAB
     Indication: Systemic lupus erythematosus
     Dosage: 600 MG, Q4W
     Dates: start: 20230907

REACTIONS (6)
  - Pneumonia [Recovered/Resolved]
  - Syncope [Recovered/Resolved]
  - Herpes zoster [Not Recovered/Not Resolved]
  - Decreased immune responsiveness [Recovered/Resolved]
  - Chills [Not Recovered/Not Resolved]
  - Pain in extremity [Not Recovered/Not Resolved]

NARRATIVE: CASE EVENT DATE: 20240623
